FAERS Safety Report 7565718-0 (Version None)
Quarter: 2011Q2

REPORT INFORMATION
  Report Type: 
  Country: None (occurrence: None)
  Receive Date: 20110623
  Receipt Date: 20100712
  Transmission Date: 20111010
  Serious: No
  Sender: FDA-Public Use
  Company Number: US-MUTUAL PHARMACEUTICAL COMPANY, INC.-2010P1000297

PATIENT
  Sex: Female

DRUGS (1)
  1. METOCLOPRAMIDE [Suspect]
     Dates: start: 20080101, end: 20100301

REACTIONS (5)
  - INCORRECT DRUG ADMINISTRATION DURATION [None]
  - TARDIVE DYSKINESIA [None]
  - EXTRAPYRAMIDAL DISORDER [None]
  - EMOTIONAL DISTRESS [None]
  - DYSKINESIA [None]
